FAERS Safety Report 8151029-1 (Version None)
Quarter: 2012Q1

REPORT INFORMATION
  Report Type: 
  Country: None (occurrence: None)
  Receive Date: 20120220
  Receipt Date: 20120210
  Transmission Date: 20120608
  Serious: Yes (Hospitalization)
  Sender: FDA-Public Use
  Company Number: US-ABBOTT-12P-163-0903622-00

PATIENT

DRUGS (1)
  1. ULTANE [Suspect]
     Indication: ANAESTHESIA

REACTIONS (4)
  - AGGRESSION [None]
  - AMNESIA [None]
  - ANAESTHETIC COMPLICATION NEUROLOGICAL [None]
  - CONFUSIONAL STATE [None]
